FAERS Safety Report 7868976-8 (Version None)
Quarter: 2011Q4

REPORT INFORMATION
  Report Type: 
  Country: None (occurrence: None)
  Receive Date: 20111028
  Receipt Date: 20101222
  Transmission Date: 20120403
  Serious: Yes (Other)
  Sender: FDA-Public Use
  Company Number: US-AMGEN-USASP2010010822

PATIENT
  Age: 9 Year
  Sex: Female

DRUGS (3)
  1. ENBREL [Suspect]
     Indication: JUVENILE ARTHRITIS
     Dosage: 25 MG, 2 TIMES/WK
  2. ENBREL [Suspect]
     Dosage: 50 MG, QWK
     Dates: start: 20050120
  3. HUMIRA [Suspect]

REACTIONS (2)
  - HEPATIC ENZYME INCREASED [None]
  - THERAPEUTIC RESPONSE DECREASED [None]
